FAERS Safety Report 4398755-8 (Version None)
Quarter: 2004Q3

REPORT INFORMATION
  Report Type: 
  Country: None (occurrence: None)
  Receive Date: 20040712
  Receipt Date: 20040701
  Transmission Date: 20050211
  Serious: Yes (Hospitalization, Other)
  Sender: FDA-Public Use
  Company Number: SE-SHR-04-024640

PATIENT
  Age: 70 Year
  Sex: Female

DRUGS (9)
  1. SOTALOL HCL [Suspect]
     Indication: ATRIAL FIBRILLATION
     Dosage: 80 MG, 2X/DAY, ORAL
     Route: 048
     Dates: end: 20040204
  2. REMERON [Suspect]
     Dosage: 45 MG, 1X/DAY, ORAL
     Route: 048
     Dates: end: 20040204
  3. SPIRIVA [Concomitant]
  4. LAKTULOSE (LACTULOSE) [Concomitant]
  5. TROMBYL (ACETYLSALICYLIC ACID) [Concomitant]
  6. ACETYLCYSTEINE [Concomitant]
  7. OXIS (FORMOTEROL) [Concomitant]
  8. TROBE(PYRIDOXINE) [Concomitant]
  9. ATACAND(CADESARTAN CILEXITIL) [Concomitant]

REACTIONS (3)
  - BACK PAIN [None]
  - HYPONATRAEMIA [None]
  - RALES [None]
